FAERS Safety Report 5164869-8 (Version None)
Quarter: 2006Q4

REPORT INFORMATION
  Report Type: 
  Country: None (occurrence: None)
  Receive Date: 20061205
  Receipt Date: 19961104
  Transmission Date: 20070319
  Serious: Yes (Death, Other)
  Sender: FDA-Public Use
  Company Number: US-ELI_LILLY_AND_COMPANY-US96112359A

PATIENT
  Age: 66 Year
  Sex: Male

DRUGS (8)
  1. PROZAC [Suspect]
     Dosage: UNK, UNKNOWN
     Dates: start: 19940816, end: 19941019
  2. KLONOPIN [Concomitant]
     Indication: MYOCLONUS
     Dosage: 0.5 MG, 3/D
     Dates: start: 19940816, end: 19941019
  3. LIBRIUM [Concomitant]
     Dosage: 10 MG, UNKNOWN
  4. LIBRAX [Concomitant]
     Indication: GASTRIC DISORDER
     Dosage: UNK, UNKNOWN
     Dates: start: 19940816, end: 19941019
  5. ZANTAC [Concomitant]
     Dosage: UNK, UNKNOWN
  6. BENADRYL [Concomitant]
     Dosage: UNK, UNKNOWN
  7. CAPTOPRIL [Concomitant]
     Dosage: UNK, UNKNOWN
  8. DOXEPIN HCL [Concomitant]
     Indication: DEPRESSION
     Dosage: 25 MG, DAILY (1/D)
     Route: 048
     Dates: start: 19920901

REACTIONS (4)
  - ABNORMAL BEHAVIOUR [None]
  - DYSARTHRIA [None]
  - HOMICIDE [None]
  - PARANOIA [None]
